FAERS Safety Report 25855518 (Version 2)
Quarter: 2025Q4

REPORT INFORMATION
  Report Type: Spontaneous
  Country: EU (occurrence: EU)
  Receive Date: 20250927
  Receipt Date: 20251006
  Transmission Date: 20260117
  Serious: Yes (Other)
  Sender: GALDERMA
  Company Number: EU-GALDERMA-PL2025018575

PATIENT

DRUGS (1)
  1. SOOLANTRA [Suspect]
     Active Substance: IVERMECTIN
     Indication: Product used for unknown indication
     Dosage: 1 DOSAGE FORM, ON SKIN 10 MG/G
     Route: 061
     Dates: start: 2025

REACTIONS (2)
  - Angioedema [Unknown]
  - Allergic cough [Unknown]

NARRATIVE: CASE EVENT DATE: 20250101
